FAERS Safety Report 24564367 (Version 1)
Quarter: 2024Q4

REPORT INFORMATION
  Report Type: Spontaneous
  Country: US (occurrence: US)
  Receive Date: 20241030
  Receipt Date: 20241030
  Transmission Date: 20250114
  Serious: Yes (Other)
  Sender: BAYER HEALTHCARE PHARMACEUTICALS INC.
  Company Number: US-BAYER-2024A150984

PATIENT
  Age: 18 Year
  Sex: Male

DRUGS (3)
  1. CIPROFLOXACIN [Suspect]
     Active Substance: CIPROFLOXACIN
     Indication: Infection
  2. CASIMERSEN [Suspect]
     Active Substance: CASIMERSEN
     Indication: Duchenne muscular dystrophy
  3. AMONDYS 45 [Concomitant]
     Active Substance: CASIMERSEN
     Dosage: UNK
     Dates: end: 20240619

REACTIONS (3)
  - Acute kidney injury [Recovered/Resolved]
  - Abdominal pain [Unknown]
  - Blood electrolytes abnormal [None]

NARRATIVE: CASE EVENT DATE: 20240501
